FAERS Safety Report 20530485 (Version 2)
Quarter: 2022Q1

REPORT INFORMATION
  Report Type: Spontaneous
  Country: US (occurrence: US)
  Receive Date: 20220301
  Receipt Date: 20220311
  Transmission Date: 20220423
  Serious: No
  Sender: FDA-Public Use
  Company Number: US-BIOVITRUM-2022US02929

PATIENT
  Sex: Female

DRUGS (2)
  1. DOPTELET [Suspect]
     Active Substance: AVATROMBOPAG MALEATE
     Indication: Product used for unknown indication
  2. DOPTELET [Suspect]
     Active Substance: AVATROMBOPAG MALEATE

REACTIONS (2)
  - Platelet count increased [Unknown]
  - Hepatic enzyme increased [Unknown]
